FAERS Safety Report 7200971-4 (Version None)
Quarter: 2010Q4

REPORT INFORMATION
  Report Type: 
  Country: None (occurrence: None)
  Receive Date: 20101228
  Receipt Date: 20101221
  Transmission Date: 20110411
  Serious: Yes (Hospitalization)
  Sender: FDA-Public Use
  Company Number: FR-MERCK-1012FRA00131

PATIENT
  Age: 75 Year
  Sex: Female

DRUGS (12)
  1. JANUMET [Suspect]
     Indication: TYPE 2 DIABETES MELLITUS
     Route: 048
     Dates: start: 20100701, end: 20101012
  2. CIPROFLOXACIN HCL [Suspect]
     Route: 047
     Dates: start: 20100914, end: 20101012
  3. INFLUENZA VIRUS SPLIT VIRION 3V VACCINE INACTIVATED [Suspect]
     Indication: IMMUNISATION
     Route: 058
     Dates: start: 20101005, end: 20101005
  4. SIMVASTATIN [Concomitant]
     Route: 048
     Dates: start: 20070101
  5. PROPRANOLOL HYDROCHLORIDE [Concomitant]
     Route: 065
     Dates: start: 20070101
  6. GABAPENTIN [Concomitant]
     Route: 065
     Dates: start: 20070101
  7. AMITRIPTYLINE HYDROCHLORIDE [Concomitant]
     Route: 065
     Dates: start: 20070101
  8. CLONAZEPAM [Concomitant]
     Route: 065
     Dates: start: 20070101
  9. ESCITALOPRAM OXALATE [Concomitant]
     Route: 065
     Dates: start: 20070101
  10. AMOROLFINE [Concomitant]
     Route: 065
     Dates: start: 20070101
  11. ZOPICLONE [Concomitant]
     Route: 065
  12. FLUCONAZOLE [Concomitant]
     Indication: TONGUE ULCERATION
     Route: 065
     Dates: start: 20101008

REACTIONS (1)
  - THROMBOCYTOPENIA [None]
